FAERS Safety Report 7056063-0 (Version None)
Quarter: 2010Q4

REPORT INFORMATION
  Report Type: 
  Country: None (occurrence: None)
  Receive Date: 20101021
  Receipt Date: 20101012
  Transmission Date: 20110411
  Serious: Yes (Other)
  Sender: FDA-Public Use
  Company Number: GB-BAXTER-2010BH025129

PATIENT

DRUGS (2)
  1. SEVOFLURANE [Suspect]
     Indication: ANAESTHESIA
     Route: 065
     Dates: start: 20100921
  2. SEVOFLURANE [Suspect]
     Indication: SURGERY
     Route: 065
     Dates: start: 20100921

REACTIONS (2)
  - UNDERDOSE [None]
  - UNWANTED AWARENESS DURING ANAESTHESIA [None]
